FAERS Safety Report 24629420 (Version 8)
Quarter: 2025Q3

REPORT INFORMATION
  Report Type: Spontaneous
  Country: CA (occurrence: CA)
  Receive Date: 20241118
  Receipt Date: 20250709
  Transmission Date: 20251020
  Serious: Yes (Hospitalization, Other)
  Sender: Haleon PLC
  Company Number: CA-002147023-NVSC2022CA066190

PATIENT
  Age: 56 Year
  Sex: Female
  Weight: 115 kg

DRUGS (321)
  1. DICLOFENAC SODIUM [Suspect]
     Active Substance: DICLOFENAC SODIUM
     Indication: Product used for unknown indication
  2. DICLOFENAC SODIUM [Suspect]
     Active Substance: DICLOFENAC SODIUM
  3. TRIAMCINOLONE [Suspect]
     Active Substance: TRIAMCINOLONE
     Indication: Rheumatoid arthritis
  4. TRIAMCINOLONE [Suspect]
     Active Substance: TRIAMCINOLONE
  5. XELJANZ [Suspect]
     Active Substance: TOFACITINIB CITRATE
     Indication: Rheumatoid arthritis
     Route: 048
  6. XELJANZ [Suspect]
     Active Substance: TOFACITINIB CITRATE
     Indication: Product used for unknown indication
     Dosage: 5 MG, BID
     Route: 048
  7. XELJANZ [Suspect]
     Active Substance: TOFACITINIB CITRATE
     Route: 048
  8. XELJANZ [Suspect]
     Active Substance: TOFACITINIB CITRATE
     Route: 048
  9. XELJANZ [Suspect]
     Active Substance: TOFACITINIB CITRATE
     Dosage: 5 MG, QD
     Route: 048
  10. XELJANZ [Suspect]
     Active Substance: TOFACITINIB CITRATE
     Route: 048
  11. SIMPONI [Suspect]
     Active Substance: GOLIMUMAB
     Indication: Rheumatoid arthritis
     Dosage: 50 MG, QW DOSE FORM: SOLUTION FOR INJECTION IN PRE-FILLED PEN?PATIENT ROA: SUBCUTANEOUS
  12. SIMPONI [Suspect]
     Active Substance: GOLIMUMAB
     Dosage: 50 MG, QMO (SOLUTION SUBCUTANEOUS) DOSE FORM: SOLUTION FOR INJECTION IN PRE-FILLED PEN PATIENT RO...
  13. REMICADE [Suspect]
     Active Substance: INFLIXIMAB
     Indication: Product used for unknown indication
     Route: 042
  14. REMICADE [Suspect]
     Active Substance: INFLIXIMAB
     Indication: Rheumatoid arthritis
     Route: 042
  15. REMICADE [Suspect]
     Active Substance: INFLIXIMAB
     Route: 042
  16. REMICADE [Suspect]
     Active Substance: INFLIXIMAB
     Route: 042
  17. PREDNISONE [Suspect]
     Active Substance: PREDNISONE
     Indication: Product used for unknown indication
  18. PREDNISONE [Suspect]
     Active Substance: PREDNISONE
  19. PREDNISONE [Suspect]
     Active Substance: PREDNISONE
  20. PREDNISONE [Suspect]
     Active Substance: PREDNISONE
     Dosage: 3 MG, BID
     Route: 048
  21. PREDNISONE [Suspect]
     Active Substance: PREDNISONE
     Dosage: 5 MG, BID
     Route: 048
  22. ORENCIA [Suspect]
     Active Substance: ABATACEPT
     Indication: Rheumatoid arthritis
  23. ORENCIA [Suspect]
     Active Substance: ABATACEPT
     Dosage: 250 MG, QMO PATIENT ROA: INTRAVENOUS (NOT OTHERWISE SPECIFIED)
  24. ORENCIA [Suspect]
     Active Substance: ABATACEPT
     Dosage: 150 MG, QW
     Route: 058
  25. ORENCIA [Suspect]
     Active Substance: ABATACEPT
  26. ORENCIA [Suspect]
     Active Substance: ABATACEPT
  27. NAPROXEN [Suspect]
     Active Substance: NAPROXEN
     Indication: Rheumatoid arthritis
  28. NAPROXEN [Suspect]
     Active Substance: NAPROXEN
     Indication: Product used for unknown indication
  29. NAPROXEN [Suspect]
     Active Substance: NAPROXEN
  30. NAPROXEN SODIUM [Suspect]
     Active Substance: NAPROXEN SODIUM
     Indication: Rheumatoid arthritis
     Dosage: PATIENT ROA: UNKNOWN
  31. NAPROXEN SODIUM [Suspect]
     Active Substance: NAPROXEN SODIUM
     Dosage: PATIENT ROA: UNKNOWN
  32. NAPROXEN SODIUM [Suspect]
     Active Substance: NAPROXEN SODIUM
  33. GAMMAGARD [Suspect]
     Active Substance: HUMAN IMMUNOGLOBULIN G
     Indication: Product used for unknown indication
  34. CETIRIZINE [Suspect]
     Active Substance: CETIRIZINE HYDROCHLORIDE
     Indication: Rheumatoid arthritis
  35. CETIRIZINE [Suspect]
     Active Substance: CETIRIZINE HYDROCHLORIDE
     Indication: Off label use
     Route: 042
  36. ERELZI [Suspect]
     Active Substance: ETANERCEPT-SZZS
     Indication: Rheumatoid arthritis
  37. ERELZI [Suspect]
     Active Substance: ETANERCEPT-SZZS
     Indication: Product used for unknown indication
  38. ERELZI [Suspect]
     Active Substance: ETANERCEPT-SZZS
     Dosage: 25 MG Q2W PATIENT ROA: SUBCUTANEOUS
  39. ERELZI [Suspect]
     Active Substance: ETANERCEPT-SZZS
     Dosage: 25 MG BIW PATIENT ROA: SUBCUTANEOUS
  40. ERELZI [Suspect]
     Active Substance: ETANERCEPT-SZZS
     Dosage: 12. 5 MG QW PATIENT ROA: SUBCUTANEOUS
  41. ERELZI [Suspect]
     Active Substance: ETANERCEPT-SZZS
     Dosage: 25 MG QW PATIENT ROA: UNKNOWN DOSE FORM: UNKNOWN
  42. ERELZI [Suspect]
     Active Substance: ETANERCEPT-SZZS
  43. ERELZI [Suspect]
     Active Substance: ETANERCEPT-SZZS
  44. ERELZI [Suspect]
     Active Substance: ETANERCEPT-SZZS
  45. ERELZI [Suspect]
     Active Substance: ETANERCEPT-SZZS
  46. ERELZI [Suspect]
     Active Substance: ETANERCEPT-SZZS
  47. ERELZI [Suspect]
     Active Substance: ETANERCEPT-SZZS
  48. ERELZI [Suspect]
     Active Substance: ETANERCEPT-SZZS
  49. ERELZI [Suspect]
     Active Substance: ETANERCEPT-SZZS
  50. ERELZI [Suspect]
     Active Substance: ETANERCEPT-SZZS
  51. ERELZI [Suspect]
     Active Substance: ETANERCEPT-SZZS
     Dosage: 50 MG, QW  PATIENT ROA: UNKNOWN
  52. ERELZI [Suspect]
     Active Substance: ETANERCEPT-SZZS
     Dosage: 12.5 MG, QW DOSE FORM: UNKNOWN PATIENT ROA: UNKNOWN
  53. ERELZI [Suspect]
     Active Substance: ETANERCEPT-SZZS
     Dosage: UNK, Q3W DOSE FORM: UNKNOWN PATIENT ROA: SUBCUTANEOUS
  54. ERELZI [Suspect]
     Active Substance: ETANERCEPT-SZZS
  55. ERELZI [Suspect]
     Active Substance: ETANERCEPT-SZZS
  56. ADALIMUMAB [Suspect]
     Active Substance: ADALIMUMAB
     Indication: Rheumatoid arthritis
     Dosage: (40 MG, Q2W) SOLUTION SUBCUTANEOUS
     Route: 058
  57. ADALIMUMAB [Suspect]
     Active Substance: ADALIMUMAB
     Route: 058
  58. ADALIMUMAB [Suspect]
     Active Substance: ADALIMUMAB
     Route: 058
  59. ADALIMUMAB [Suspect]
     Active Substance: ADALIMUMAB
     Route: 058
  60. ADALIMUMAB [Suspect]
     Active Substance: ADALIMUMAB
     Route: 058
  61. HYRIMOZ [Suspect]
     Active Substance: ADALIMUMAB-ADAZ
     Indication: Rheumatoid arthritis
  62. ALENDRONIC ACID [Suspect]
     Active Substance: ALENDRONIC ACID
     Indication: Rheumatoid arthritis
  63. LEFLUNOMIDE [Suspect]
     Active Substance: LEFLUNOMIDE
     Indication: Rheumatoid arthritis
     Route: 048
  64. LEFLUNOMIDE [Suspect]
     Active Substance: LEFLUNOMIDE
     Route: 048
  65. LEFLUNOMIDE [Suspect]
     Active Substance: LEFLUNOMIDE
     Dosage: DOSE FORM: UNKNOWN
     Route: 048
  66. METHOTREXATE [Suspect]
     Active Substance: METHOTREXATE
     Indication: Rheumatoid arthritis
     Dosage: DOSE FORM: UNKNOWN PATIENT ROA: SUBCUTANEOUS
  67. METHOTREXATE [Suspect]
     Active Substance: METHOTREXATE
     Indication: Product used for unknown indication
  68. METHOTREXATE [Suspect]
     Active Substance: METHOTREXATE
  69. METHOTREXATE [Suspect]
     Active Substance: METHOTREXATE
     Dosage: DOSE FORM: UNKNOWN PATIENT ROA: SUBCUTANEOUS
  70. METHOTREXATE [Suspect]
     Active Substance: METHOTREXATE
  71. METHOTREXATE [Suspect]
     Active Substance: METHOTREXATE
  72. METHOTREXATE [Suspect]
     Active Substance: METHOTREXATE
  73. METHOTREXATE [Suspect]
     Active Substance: METHOTREXATE
  74. METHOTREXATE [Suspect]
     Active Substance: METHOTREXATE
     Route: 048
  75. METHOTREXATE [Suspect]
     Active Substance: METHOTREXATE
     Dosage: DOSE FORM: UNKNOWN PATIENT ROA: SUBCUTANEOUS
  76. METHOTREXATE [Suspect]
     Active Substance: METHOTREXATE
  77. METHOTREXATE [Suspect]
     Active Substance: METHOTREXATE
     Route: 048
  78. METHOTREXATE [Suspect]
     Active Substance: METHOTREXATE
  79. METHOTREXATE [Suspect]
     Active Substance: METHOTREXATE
  80. METHOTREXATE [Suspect]
     Active Substance: METHOTREXATE
  81. METHOTREXATE [Suspect]
     Active Substance: METHOTREXATE
  82. METHOTREXATE [Suspect]
     Active Substance: METHOTREXATE
  83. METHOTREXATE [Suspect]
     Active Substance: METHOTREXATE
     Route: 048
  84. METHOTREXATE [Suspect]
     Active Substance: METHOTREXATE
  85. METHOTREXATE [Suspect]
     Active Substance: METHOTREXATE
     Route: 048
  86. METHOTREXATE [Suspect]
     Active Substance: METHOTREXATE
  87. METHOTREXATE [Suspect]
     Active Substance: METHOTREXATE
  88. METHOTREXATE [Suspect]
     Active Substance: METHOTREXATE
     Dosage: 15 MG, QW  PATIENT ROA: UNKNOWN DOSE FORM: UNKNOWN
  89. METHOTREXATE [Suspect]
     Active Substance: METHOTREXATE
     Dosage: 15 MG, BIW PATIENT ROA: UNKNOWN DOSE FORM: UNKNOWN
  90. METHOTREXATE [Suspect]
     Active Substance: METHOTREXATE
     Dosage: 15 MG, QD PATIENT ROA: UNKNOWN DOSE FORM: UNKNOWN
  91. METHOTREXATE [Suspect]
     Active Substance: METHOTREXATE
     Dosage: 15 MG, BIW PATIENT ROA: SUBCUTANEOUS DOSE FORM: UNKNOWN
  92. METHOTREXATE [Suspect]
     Active Substance: METHOTREXATE
  93. METHOTREXATE [Suspect]
     Active Substance: METHOTREXATE
  94. FOLIC ACID [Suspect]
     Active Substance: FOLIC ACID
     Indication: Rheumatoid arthritis
  95. FOLIC ACID [Suspect]
     Active Substance: FOLIC ACID
     Indication: Product used for unknown indication
  96. FOLIC ACID [Suspect]
     Active Substance: FOLIC ACID
  97. TRIAMCINOLONE ACETONIDE [Suspect]
     Active Substance: TRIAMCINOLONE ACETONIDE
     Indication: Product used for unknown indication
  98. TRIAMCINOLONE ACETONIDE [Suspect]
     Active Substance: TRIAMCINOLONE ACETONIDE
  99. TRIAMCINOLONE ACETONIDE [Suspect]
     Active Substance: TRIAMCINOLONE ACETONIDE
  100. TRIAMCINOLONE ACETONIDE [Suspect]
     Active Substance: TRIAMCINOLONE ACETONIDE
  101. RISEDRONATE SODIUM [Suspect]
     Active Substance: RISEDRONATE SODIUM
     Indication: Product used for unknown indication
     Route: 048
  102. RISEDRONATE SODIUM [Suspect]
     Active Substance: RISEDRONATE SODIUM
     Dosage: PATIENT ROA: UNKNOWN
  103. RISEDRONATE SODIUM [Suspect]
     Active Substance: RISEDRONATE SODIUM
  104. RISEDRONATE SODIUM [Suspect]
     Active Substance: RISEDRONATE SODIUM
     Dosage: PATIENT ROA: UNKNOWN
  105. RISEDRONATE SODIUM [Suspect]
     Active Substance: RISEDRONATE SODIUM
     Dosage: PATIENT ROA: UNKNOWN
  106. RISEDRONATE SODIUM [Suspect]
     Active Substance: RISEDRONATE SODIUM
     Dosage: PATIENT ROA: UNKNOWN
  107. RISEDRONATE SODIUM [Suspect]
     Active Substance: RISEDRONATE SODIUM
     Dosage: 35 MG, QW
     Route: 048
  108. RITUXIMAB [Suspect]
     Active Substance: RITUXIMAB
     Indication: Rheumatoid arthritis
     Dosage: DOSE FORM: CONCENTRATE FOR SOLUTION FOR INFUSION?PATIENT ROA: INTRAVENOUS (NOT OTHERWISE SPECIFIED)
  109. RITUXIMAB [Suspect]
     Active Substance: RITUXIMAB
     Dosage: DOSE FORM: CONCENTRATE FOR SOLUTION FOR INFUSION?PATIENT ROA: UNKNOWN
  110. RITUXIMAB [Suspect]
     Active Substance: RITUXIMAB
  111. RITUXIMAB [Suspect]
     Active Substance: RITUXIMAB
  112. RITUXIMAB [Suspect]
     Active Substance: RITUXIMAB
  113. RITUXIMAB [Suspect]
     Active Substance: RITUXIMAB
  114. RITUXIMAB [Suspect]
     Active Substance: RITUXIMAB
  115. RITUXIMAB [Suspect]
     Active Substance: RITUXIMAB
  116. RITUXIMAB [Suspect]
     Active Substance: RITUXIMAB
  117. RITUXIMAB [Suspect]
     Active Substance: RITUXIMAB
  118. RITUXIMAB [Suspect]
     Active Substance: RITUXIMAB
  119. RITUXIMAB [Suspect]
     Active Substance: RITUXIMAB
  120. RITUXIMAB [Suspect]
     Active Substance: RITUXIMAB
  121. RITUXIMAB [Suspect]
     Active Substance: RITUXIMAB
     Dosage: DOSE FORM: CONCENTRATE FOR SOLUTION FOR INFUSION?PATIENT ROA: UNKNOWN
  122. RITUXIMAB [Suspect]
     Active Substance: RITUXIMAB
  123. RITUXIMAB [Suspect]
     Active Substance: RITUXIMAB
  124. RITUXIMAB [Suspect]
     Active Substance: RITUXIMAB
  125. RITUXIMAB [Suspect]
     Active Substance: RITUXIMAB
     Dosage: DOSE FORM: CONCENTRATE FOR SOLUTION FOR INFUSION?PATIENT ROA:UNKNOWN
  126. RITUXIMAB [Suspect]
     Active Substance: RITUXIMAB
     Dosage: 1000 MG QD (INTRAVENOUS (NOT OTHERWISE SPECIFIED)?DOSE FORM: CONCENTRATE FOR SOLUTION FOR INFUSIO...
  127. INFLIXIMAB [Suspect]
     Active Substance: INFLIXIMAB
     Indication: Product used for unknown indication
  128. INFLIXIMAB [Suspect]
     Active Substance: INFLIXIMAB
  129. INFLIXIMAB [Suspect]
     Active Substance: INFLIXIMAB
  130. INFLIXIMAB [Suspect]
     Active Substance: INFLIXIMAB
  131. CELECOXIB [Suspect]
     Active Substance: CELECOXIB
     Indication: Rheumatoid arthritis
     Route: 048
  132. CELECOXIB [Suspect]
     Active Substance: CELECOXIB
     Route: 048
  133. CELECOXIB [Suspect]
     Active Substance: CELECOXIB
     Dosage: PATIENT ROA: UNKNOWN
  134. CELECOXIB [Suspect]
     Active Substance: CELECOXIB
  135. COSENTYX [Suspect]
     Active Substance: SECUKINUMAB
     Indication: Psoriatic arthropathy
  136. ARAVA [Suspect]
     Active Substance: LEFLUNOMIDE
     Indication: Rheumatoid arthritis
     Dosage: PATIENT ROA SUBCUTANEOUS
  137. ARAVA [Suspect]
     Active Substance: LEFLUNOMIDE
  138. ARAVA [Suspect]
     Active Substance: LEFLUNOMIDE
     Dosage: PATIENT ROA : UNKNOWN
  139. ARAVA [Suspect]
     Active Substance: LEFLUNOMIDE
     Dosage: 20 MG, Q24H PATIENT ROA : UNKNOWN
  140. ARAVA [Suspect]
     Active Substance: LEFLUNOMIDE
     Route: 048
  141. ARAVA [Suspect]
     Active Substance: LEFLUNOMIDE
     Route: 048
  142. ARAVA [Suspect]
     Active Substance: LEFLUNOMIDE
  143. ARAVA [Suspect]
     Active Substance: LEFLUNOMIDE
  144. ARAVA [Suspect]
     Active Substance: LEFLUNOMIDE
  145. CIMZIA [Suspect]
     Active Substance: CERTOLIZUMAB PEGOL
     Indication: Rheumatoid arthritis
  146. CIMZIA [Suspect]
     Active Substance: CERTOLIZUMAB PEGOL
     Indication: Psoriasis
  147. CIMZIA [Suspect]
     Active Substance: CERTOLIZUMAB PEGOL
  148. CIMZIA [Suspect]
     Active Substance: CERTOLIZUMAB PEGOL
  149. CORTISONE ACETATE [Suspect]
     Active Substance: CORTISONE ACETATE
     Indication: Rheumatoid arthritis
  150. CORTISONE ACETATE [Suspect]
     Active Substance: CORTISONE ACETATE
     Indication: Product used for unknown indication
  151. DESOXIMETASONE [Suspect]
     Active Substance: DESOXIMETASONE
     Indication: Rheumatoid arthritis
     Route: 048
  152. ENBREL [Suspect]
     Active Substance: ETANERCEPT
     Indication: Rheumatoid arthritis
  153. ENBREL [Suspect]
     Active Substance: ETANERCEPT
     Indication: Product used for unknown indication
  154. ENBREL [Suspect]
     Active Substance: ETANERCEPT
  155. ENBREL [Suspect]
     Active Substance: ETANERCEPT
     Dosage: PATIENT ROA: UNKNOWN
  156. ENBREL [Suspect]
     Active Substance: ETANERCEPT
     Dosage: PATIENT ROA: SUBCUTNEOUS
  157. ENBREL [Suspect]
     Active Substance: ETANERCEPT
  158. ENBREL [Suspect]
     Active Substance: ETANERCEPT
  159. ENBREL [Suspect]
     Active Substance: ETANERCEPT
     Dosage: PATIENT ROA:UNKNOWN
  160. ENBREL [Suspect]
     Active Substance: ETANERCEPT
     Dosage: 50 MG, 25 MG, BIW PATIENT ROA: SUBCUTNEOUS
  161. ENBREL [Suspect]
     Active Substance: ETANERCEPT
     Dosage: 25 MG, BIW PATIENT ROA: SUBCUTNEOUS
  162. ENBREL [Suspect]
     Active Substance: ETANERCEPT
     Dosage: 25 MG, BID PATIENT ROA: SUBCUTANEOUS
  163. ENBREL [Suspect]
     Active Substance: ETANERCEPT
     Dosage: 12.5 MG, QW  PATIENT ROA: SUBCUTANEOUS
  164. ENBREL [Suspect]
     Active Substance: ETANERCEPT
  165. ENBREL [Suspect]
     Active Substance: ETANERCEPT
     Dosage: PATIENT ROA: UNKNOWN
  166. GOLD [Suspect]
     Active Substance: GOLD
     Indication: Product used for unknown indication
  167. HUMIRA [Suspect]
     Active Substance: ADALIMUMAB
     Indication: Rheumatoid arthritis
  168. HUMIRA [Suspect]
     Active Substance: ADALIMUMAB
     Dosage: DOSE FORM: SOLUTION?PATIENT ROA: SUBCUTANEOUS
  169. HUMIRA [Suspect]
     Active Substance: ADALIMUMAB
     Dosage: DOSE FORM: SOLUTION?PATIENT ROA: SUBCUTANEOUS
  170. HUMIRA [Suspect]
     Active Substance: ADALIMUMAB
     Dosage: DOSE FORM: SOLUTION?PATIENT ROA: SUBCUTANEOUS
  171. HYDROXYCHLOROQUINE SULFATE [Suspect]
     Active Substance: HYDROXYCHLOROQUINE SULFATE
     Indication: Rheumatoid arthritis
     Route: 048
  172. HYDROXYCHLOROQUINE SULFATE [Suspect]
     Active Substance: HYDROXYCHLOROQUINE SULFATE
     Indication: Product used for unknown indication
     Dosage: PATIENT ROA: UNKNOWN
  173. HYDROXYCHLOROQUINE SULFATE [Suspect]
     Active Substance: HYDROXYCHLOROQUINE SULFATE
     Route: 048
  174. HYDROXYCHLOROQUINE SULFATE [Suspect]
     Active Substance: HYDROXYCHLOROQUINE SULFATE
     Route: 048
  175. HYDROXYCHLOROQUINE SULFATE [Suspect]
     Active Substance: HYDROXYCHLOROQUINE SULFATE
     Dosage: PATIENT ROA: UNKNOWN
  176. HYDROXYCHLOROQUINE SULFATE [Suspect]
     Active Substance: HYDROXYCHLOROQUINE SULFATE
     Dosage: PATIENT ROA: UNKNOWN
  177. HYDROXYCHLOROQUINE SULFATE [Suspect]
     Active Substance: HYDROXYCHLOROQUINE SULFATE
  178. HYDROXYCHLOROQUINE SULFATE [Suspect]
     Active Substance: HYDROXYCHLOROQUINE SULFATE
     Dosage: PATIENT ROA: UNKNOWN
  179. HYDROXYCHLOROQUINE SULFATE [Suspect]
     Active Substance: HYDROXYCHLOROQUINE SULFATE
     Route: 048
  180. HYDROXYCHLOROQUINE SULFATE [Suspect]
     Active Substance: HYDROXYCHLOROQUINE SULFATE
  181. HYDROXYCHLOROQUINE SULFATE [Suspect]
     Active Substance: HYDROXYCHLOROQUINE SULFATE
     Route: 048
  182. HYDROXYCHLOROQUINE SULFATE [Suspect]
     Active Substance: HYDROXYCHLOROQUINE SULFATE
     Route: 048
  183. HYDROXYCHLOROQUINE SULFATE [Suspect]
     Active Substance: HYDROXYCHLOROQUINE SULFATE
     Dosage: 200 MG , BID
     Route: 048
  184. HYDROXYCHLOROQUINE SULFATE [Suspect]
     Active Substance: HYDROXYCHLOROQUINE SULFATE
  185. HYDROXYCHLOROQUINE SULFATE [Suspect]
     Active Substance: HYDROXYCHLOROQUINE SULFATE
     Route: 048
  186. HYDROXYCHLOROQUINE SULFATE [Suspect]
     Active Substance: HYDROXYCHLOROQUINE SULFATE
     Dosage: PATIENT ROA: UNKNOWN
  187. HYDROXYCHLOROQUINE SULFATE [Suspect]
     Active Substance: HYDROXYCHLOROQUINE SULFATE
     Dosage: PATIENT ROA: UNKNOWN
  188. HYDROXYCHLOROQUINE SULFATE [Suspect]
     Active Substance: HYDROXYCHLOROQUINE SULFATE
     Route: 048
  189. HYDROXYCHLOROQUINE SULFATE [Suspect]
     Active Substance: HYDROXYCHLOROQUINE SULFATE
     Dosage: UNK, UNK, QD PATIENT ROA: UNKNOWN
  190. HYDROXYCHLOROQUINE SULFATE [Suspect]
     Active Substance: HYDROXYCHLOROQUINE SULFATE
     Dosage: UNK, UNK, QD PATIENT ROA: UNKNOWN
  191. HYDROXYCHLOROQUINE SULFATE [Suspect]
     Active Substance: HYDROXYCHLOROQUINE SULFATE
     Route: 048
  192. HYDROXYCHLOROQUINE SULFATE [Suspect]
     Active Substance: HYDROXYCHLOROQUINE SULFATE
     Route: 048
  193. HYDROXYCHLOROQUINE SULFATE [Suspect]
     Active Substance: HYDROXYCHLOROQUINE SULFATE
  194. HYDROXYCHLOROQUINE SULFATE [Suspect]
     Active Substance: HYDROXYCHLOROQUINE SULFATE
     Dosage: 300 MG, QH
     Route: 048
  195. HYDROXYCHLOROQUINE SULFATE [Suspect]
     Active Substance: HYDROXYCHLOROQUINE SULFATE
     Route: 048
  196. HYDROXYCHLOROQUINE SULFATE [Suspect]
     Active Substance: HYDROXYCHLOROQUINE SULFATE
  197. HYDROXYCHLOROQUINE SULFATE [Suspect]
     Active Substance: HYDROXYCHLOROQUINE SULFATE
     Dosage: 20 MG, BID PATIENT ROA: UNKNOWN
  198. HYDROXYCHLOROQUINE SULFATE [Suspect]
     Active Substance: HYDROXYCHLOROQUINE SULFATE
     Dosage: 300 MG, QD
     Route: 048
  199. HYDROXYCHLOROQUINE SULFATE [Suspect]
     Active Substance: HYDROXYCHLOROQUINE SULFATE
  200. HYDROXYCHLOROQUINE SULFATE [Suspect]
     Active Substance: HYDROXYCHLOROQUINE SULFATE
  201. HYDROXYCHLOROQUINE SULFATE [Suspect]
     Active Substance: HYDROXYCHLOROQUINE SULFATE
     Dosage: 300 MG, QD
     Route: 048
  202. HYDROXYCHLOROQUINE SULFATE [Suspect]
     Active Substance: HYDROXYCHLOROQUINE SULFATE
     Dosage: 200 MG, BID
     Route: 048
  203. HUMAN IMMUNOGLOBULIN G [Suspect]
     Active Substance: HUMAN IMMUNOGLOBULIN G
     Indication: Product used for unknown indication
  204. HUMAN IMMUNOGLOBULIN G [Suspect]
     Active Substance: HUMAN IMMUNOGLOBULIN G
     Indication: Rheumatoid arthritis
     Route: 042
  205. LEFLUNOMIDE [Suspect]
     Active Substance: LEFLUNOMIDE
     Indication: Rheumatoid arthritis
  206. LEFLUNOMIDE [Suspect]
     Active Substance: LEFLUNOMIDE
     Dosage: 20 MG, QD (6 EVERY 1 DAYS) PATIENT ROA: UNKNOWN
  207. LEFLUNOMIDE [Suspect]
     Active Substance: LEFLUNOMIDE
     Dosage: PATIENT ROA: UNKNOWN
  208. LEFLUNOMIDE [Suspect]
     Active Substance: LEFLUNOMIDE
     Route: 048
  209. LEFLUNOMIDE [Suspect]
     Active Substance: LEFLUNOMIDE
     Dosage: 29 MG. QH
     Route: 048
  210. LEFLUNOMIDE [Suspect]
     Active Substance: LEFLUNOMIDE
     Dosage: 6 EVERY 1 DAYS
     Route: 048
  211. LEFLUNOMIDE [Suspect]
     Active Substance: LEFLUNOMIDE
     Dosage: PATIENT ROA: UNKNOWN
  212. LEFLUNOMIDE [Suspect]
     Active Substance: LEFLUNOMIDE
  213. LEFLUNOMIDE [Suspect]
     Active Substance: LEFLUNOMIDE
     Route: 048
  214. LEFLUNOMIDE [Suspect]
     Active Substance: LEFLUNOMIDE
     Dosage: PATIENT ROA: UNKNOWN
  215. LEFLUNOMIDE [Suspect]
     Active Substance: LEFLUNOMIDE
     Route: 048
  216. LEVOCETIRIZINE [Suspect]
     Active Substance: LEVOCETIRIZINE
     Indication: Product used for unknown indication
  217. LEVOCETIRIZINE [Suspect]
     Active Substance: LEVOCETIRIZINE
     Indication: Rheumatoid arthritis
  218. LEVOCETIRIZINE HYDROCHLORIDE [Suspect]
     Active Substance: LEVOCETIRIZINE HYDROCHLORIDE
     Indication: Rheumatoid arthritis
  219. LEVOCETIRIZINE HYDROCHLORIDE [Suspect]
     Active Substance: LEVOCETIRIZINE HYDROCHLORIDE
     Indication: Product used for unknown indication
  220. ACTEMRA [Suspect]
     Active Substance: TOCILIZUMAB
     Indication: Rheumatoid arthritis
  221. ACTEMRA [Suspect]
     Active Substance: TOCILIZUMAB
     Indication: Product used for unknown indication
  222. ACTEMRA [Suspect]
     Active Substance: TOCILIZUMAB
  223. ACTEMRA [Suspect]
     Active Substance: TOCILIZUMAB
  224. ACTEMRA [Suspect]
     Active Substance: TOCILIZUMAB
  225. ACTEMRA [Suspect]
     Active Substance: TOCILIZUMAB
  226. ACTEMRA [Suspect]
     Active Substance: TOCILIZUMAB
  227. ACTEMRA [Suspect]
     Active Substance: TOCILIZUMAB
  228. ACTEMRA [Suspect]
     Active Substance: TOCILIZUMAB
  229. ACTEMRA [Suspect]
     Active Substance: TOCILIZUMAB
  230. ACTEMRA [Suspect]
     Active Substance: TOCILIZUMAB
     Route: 042
  231. ACTEMRA [Suspect]
     Active Substance: TOCILIZUMAB
     Route: 042
  232. ACTEMRA [Suspect]
     Active Substance: TOCILIZUMAB
     Route: 042
  233. ACTEMRA [Suspect]
     Active Substance: TOCILIZUMAB
     Route: 042
  234. ACTEMRA [Suspect]
     Active Substance: TOCILIZUMAB
     Route: 042
  235. ACTEMRA [Suspect]
     Active Substance: TOCILIZUMAB
     Route: 042
  236. ACTEMRA [Suspect]
     Active Substance: TOCILIZUMAB
     Route: 042
  237. ANAKINRA [Suspect]
     Active Substance: ANAKINRA
     Indication: Rheumatoid arthritis
     Dosage: PATIENT ROA: SUBCUTANEOUS
  238. ANAKINRA [Suspect]
     Active Substance: ANAKINRA
  239. ANAKINRA [Suspect]
     Active Substance: ANAKINRA
     Dosage: PATIENT ROA: UNKNOWN
  240. ANAKINRA [Suspect]
     Active Substance: ANAKINRA
  241. ANAKINRA [Suspect]
     Active Substance: ANAKINRA
     Route: 048
  242. ANAKINRA [Suspect]
     Active Substance: ANAKINRA
  243. ANAKINRA [Suspect]
     Active Substance: ANAKINRA
  244. ANAKINRA [Suspect]
     Active Substance: ANAKINRA
  245. ANAKINRA [Suspect]
     Active Substance: ANAKINRA
     Route: 048
  246. ANAKINRA [Suspect]
     Active Substance: ANAKINRA
  247. LEFLUNOMIDE [Suspect]
     Active Substance: LEFLUNOMIDE
     Indication: Rheumatoid arthritis
     Route: 048
  248. LEFLUNOMIDE [Suspect]
     Active Substance: LEFLUNOMIDE
     Route: 048
  249. LEFLUNOMIDE [Suspect]
     Active Substance: LEFLUNOMIDE
     Route: 048
  250. LEFLUNOMIDE [Suspect]
     Active Substance: LEFLUNOMIDE
     Route: 048
  251. LEFLUNOMIDE [Suspect]
     Active Substance: LEFLUNOMIDE
     Route: 048
  252. LEFLUNOMIDE [Suspect]
     Active Substance: LEFLUNOMIDE
     Route: 048
  253. LEFLUNOMIDE [Suspect]
     Active Substance: LEFLUNOMIDE
     Dosage: PATIENT ROA: UNKNOWN
  254. LEFLUNOMIDE [Suspect]
     Active Substance: LEFLUNOMIDE
     Dosage: PATIENT ROA: UNKNOWN
  255. LEFLUNOMIDE [Suspect]
     Active Substance: LEFLUNOMIDE
  256. LEFLUNOMIDE [Suspect]
     Active Substance: LEFLUNOMIDE
     Dosage: PATIENT ROA: UNKNOWN
  257. LEFLUNOMIDE [Suspect]
     Active Substance: LEFLUNOMIDE
  258. LEFLUNOMIDE [Suspect]
     Active Substance: LEFLUNOMIDE
     Route: 048
  259. NAPROXEN [Suspect]
     Active Substance: NAPROXEN
     Indication: Product used for unknown indication
  260. PREDNISONE [Suspect]
     Active Substance: PREDNISONE
     Indication: Product used for unknown indication
     Route: 048
  261. PREDNISONE [Suspect]
     Active Substance: PREDNISONE
     Route: 048
  262. PREDNISONE [Suspect]
     Active Substance: PREDNISONE
     Route: 048
  263. PREDNISONE [Suspect]
     Active Substance: PREDNISONE
  264. PREDNISONE [Suspect]
     Active Substance: PREDNISONE
  265. PREDNISONE [Suspect]
     Active Substance: PREDNISONE
     Route: 048
  266. PREDNISONE [Suspect]
     Active Substance: PREDNISONE
  267. PREDNISONE [Suspect]
     Active Substance: PREDNISONE
     Route: 048
  268. PREDNISONE [Suspect]
     Active Substance: PREDNISONE
  269. PREDNISONE [Suspect]
     Active Substance: PREDNISONE
     Dosage: 20 MG, Q24H PATIENT ROA: UNKNOWN
  270. PREDNISONE [Suspect]
     Active Substance: PREDNISONE
     Dosage: 6MG, 3MG, BID
     Route: 048
  271. PREDNISONE [Suspect]
     Active Substance: PREDNISONE
     Dosage: 3 MG, 2 EVERY 12 HOURS PATIENT ROA: UNKNOWN
  272. PREDNISONE [Suspect]
     Active Substance: PREDNISONE
  273. COSENTYX [Concomitant]
     Active Substance: SECUKINUMAB
     Indication: Product used for unknown indication
  274. HYDROXYCHLOROQUINE [Suspect]
     Active Substance: HYDROXYCHLOROQUINE
     Indication: Rheumatoid arthritis
     Dosage: 5 MG, QD
     Route: 048
  275. HYDROXYCHLOROQUINE [Suspect]
     Active Substance: HYDROXYCHLOROQUINE
     Route: 048
  276. HYDROXYCHLOROQUINE [Suspect]
     Active Substance: HYDROXYCHLOROQUINE
     Route: 048
  277. HYDROXYCHLOROQUINE [Suspect]
     Active Substance: HYDROXYCHLOROQUINE
     Route: 048
  278. HYDROXYCHLOROQUINE [Suspect]
     Active Substance: HYDROXYCHLOROQUINE
     Dosage: PATIENT ROA: UNKNOWN
  279. HYDROXYCHLOROQUINE [Suspect]
     Active Substance: HYDROXYCHLOROQUINE
     Route: 048
  280. HYDROXYCHLOROQUINE [Suspect]
     Active Substance: HYDROXYCHLOROQUINE
     Dosage: 20 MG, BID PATIENT ROA: UNKNOWN
  281. HYDROXYCHLOROQUINE [Suspect]
     Active Substance: HYDROXYCHLOROQUINE
     Route: 048
  282. HYDROXYCHLOROQUINE [Suspect]
     Active Substance: HYDROXYCHLOROQUINE
     Dosage: 200 MG, BID
     Route: 048
  283. HYDROXYCHLOROQUINE [Suspect]
     Active Substance: HYDROXYCHLOROQUINE
     Dosage: PATIENT ROA: UNKNOWN
  284. HYDROXYCHLOROQUINE [Suspect]
     Active Substance: HYDROXYCHLOROQUINE
  285. HYDROXYCHLOROQUINE [Suspect]
     Active Substance: HYDROXYCHLOROQUINE
  286. HYDROXYCHLOROQUINE [Suspect]
     Active Substance: HYDROXYCHLOROQUINE
  287. HYDROXYCHLOROQUINE [Suspect]
     Active Substance: HYDROXYCHLOROQUINE
     Dosage: PATIENT ROA: UNKNOWN
  288. HYDROXYCHLOROQUINE [Suspect]
     Active Substance: HYDROXYCHLOROQUINE
     Route: 048
  289. HYDROXYCHLOROQUINE [Suspect]
     Active Substance: HYDROXYCHLOROQUINE
  290. HYDROXYCHLOROQUINE [Suspect]
     Active Substance: HYDROXYCHLOROQUINE
     Route: 048
  291. HYDROXYCHLOROQUINE [Suspect]
     Active Substance: HYDROXYCHLOROQUINE
  292. HYDROXYCHLOROQUINE [Suspect]
     Active Substance: HYDROXYCHLOROQUINE
     Route: 048
  293. ERELZI [Suspect]
     Active Substance: ETANERCEPT-SZZS
     Indication: Rheumatoid arthritis
  294. GOLD SODIUM THIOMALATE [Suspect]
     Active Substance: GOLD SODIUM THIOMALATE
     Indication: Product used for unknown indication
  295. RISEDRONATE SODIUM [Concomitant]
     Active Substance: RISEDRONATE SODIUM
     Indication: Product used for unknown indication
     Dosage: 35 MG, QW PATIENT ROA: UNKNOWN
  296. RISEDRONATE SODIUM [Concomitant]
     Active Substance: RISEDRONATE SODIUM
  297. RISEDRONATE SODIUM [Concomitant]
     Active Substance: RISEDRONATE SODIUM
     Dosage: 35 MG, QW PATIENT ROA: UNKNOWN
  298. RISEDRONATE SODIUM [Concomitant]
     Active Substance: RISEDRONATE SODIUM
  299. PSEUDOEPHEDRINE [Suspect]
     Active Substance: PSEUDOEPHEDRINE
     Indication: Product used for unknown indication
  300. GOLIMUMAB [Suspect]
     Active Substance: GOLIMUMAB
     Indication: Rheumatoid arthritis
     Route: 058
  301. GOLIMUMAB [Suspect]
     Active Substance: GOLIMUMAB
     Route: 058
  302. GOLIMUMAB [Suspect]
     Active Substance: GOLIMUMAB
     Route: 058
  303. GOLIMUMAB [Suspect]
     Active Substance: GOLIMUMAB
     Route: 058
  304. INFLECTRA [Suspect]
     Active Substance: INFLIXIMAB-DYYB
     Indication: Product used for unknown indication
     Route: 042
  305. INFLECTRA [Suspect]
     Active Substance: INFLIXIMAB-DYYB
     Route: 042
  306. TOCILIZUMAB [Suspect]
     Active Substance: TOCILIZUMAB
     Indication: Rheumatoid arthritis
  307. TOCILIZUMAB [Suspect]
     Active Substance: TOCILIZUMAB
  308. TOCILIZUMAB [Suspect]
     Active Substance: TOCILIZUMAB
  309. TOCILIZUMAB [Suspect]
     Active Substance: TOCILIZUMAB
  310. TOCILIZUMAB [Suspect]
     Active Substance: TOCILIZUMAB
  311. TOCILIZUMAB [Suspect]
     Active Substance: TOCILIZUMAB
  312. TOCILIZUMAB [Suspect]
     Active Substance: TOCILIZUMAB
  313. TOCILIZUMAB [Suspect]
     Active Substance: TOCILIZUMAB
  314. FOLIC ACID [Concomitant]
     Active Substance: FOLIC ACID
     Indication: Product used for unknown indication
  315. PANTOPRAZOLE [Concomitant]
     Active Substance: PANTOPRAZOLE
     Indication: Product used for unknown indication
  316. PSEUDOEPHEDRINE [Concomitant]
     Active Substance: PSEUDOEPHEDRINE
     Indication: Product used for unknown indication
  317. QUETIAPINE [Concomitant]
     Active Substance: QUETIAPINE
     Indication: Product used for unknown indication
  318. SULFASALAZINE [Concomitant]
     Active Substance: SULFASALAZINE
     Indication: Product used for unknown indication
  319. CETIRIZINE HYDROCHLORIDE [Suspect]
     Active Substance: CETIRIZINE HYDROCHLORIDE
     Indication: Rheumatoid arthritis
  320. HUMAN IMMUNOGLOBULIN G [Suspect]
     Active Substance: HUMAN IMMUNOGLOBULIN G
     Indication: Product used for unknown indication
     Route: 042
  321. HUMAN IMMUNOGLOBULIN G [Suspect]
     Active Substance: HUMAN IMMUNOGLOBULIN G
     Route: 058

REACTIONS (40)
  - Adrenal insufficiency [Not Recovered/Not Resolved]
  - Anti-cyclic citrullinated peptide antibody positive [Not Recovered/Not Resolved]
  - Arthritis [Not Recovered/Not Resolved]
  - Arthropathy [Not Recovered/Not Resolved]
  - Gastroenteritis viral [Not Recovered/Not Resolved]
  - Hypertension [Not Recovered/Not Resolved]
  - Hypocalcaemia [Not Recovered/Not Resolved]
  - Hypokalaemia [Not Recovered/Not Resolved]
  - Hypotension [Not Recovered/Not Resolved]
  - Ill-defined disorder [Not Recovered/Not Resolved]
  - Immunodeficiency [Not Recovered/Not Resolved]
  - Infection [Not Recovered/Not Resolved]
  - Joint destruction [Not Recovered/Not Resolved]
  - Foot deformity [Not Recovered/Not Resolved]
  - Limb discomfort [Not Recovered/Not Resolved]
  - Loss of consciousness [Not Recovered/Not Resolved]
  - Drug hypersensitivity [Not Recovered/Not Resolved]
  - Malaise [Not Recovered/Not Resolved]
  - Mobility decreased [Not Recovered/Not Resolved]
  - Nodule [Not Recovered/Not Resolved]
  - Obesity [Not Recovered/Not Resolved]
  - Pleural effusion [Not Recovered/Not Resolved]
  - Polyarthritis [Not Recovered/Not Resolved]
  - Psoriasis [Not Recovered/Not Resolved]
  - Pyrexia [Not Recovered/Not Resolved]
  - Red blood cell sedimentation rate abnormal [Not Recovered/Not Resolved]
  - Rheumatoid factor positive [Not Recovered/Not Resolved]
  - Pulmonary fibrosis [Not Recovered/Not Resolved]
  - Fibromyalgia [Not Recovered/Not Resolved]
  - Abdominal pain [Not Recovered/Not Resolved]
  - Alopecia [Not Recovered/Not Resolved]
  - Fatigue [Not Recovered/Not Resolved]
  - Glossodynia [Not Recovered/Not Resolved]
  - Oedema [Not Recovered/Not Resolved]
  - Pain [Not Recovered/Not Resolved]
  - Product use issue [Not Recovered/Not Resolved]
  - Pemphigus [Not Recovered/Not Resolved]
  - Swelling [Not Recovered/Not Resolved]
  - Systemic lupus erythematosus [Not Recovered/Not Resolved]
  - Abdominal discomfort [Not Recovered/Not Resolved]
